FAERS Safety Report 7902964-8 (Version None)
Quarter: 2011Q4

REPORT INFORMATION
  Report Type: 
  Country: None (occurrence: None)
  Receive Date: 20111107
  Receipt Date: 20111021
  Transmission Date: 20120403
  Serious: Yes (Death, Other)
  Sender: FDA-Public Use
  Company Number: 2011110010

PATIENT
  Age: 5 Year
  Sex: Male

DRUGS (3)
  1. FELBAMATE [Suspect]
     Indication: EPILEPSY
     Dosage: 2 MILLILITER, EVERY MORNING, 4 MILLILITER EVERY NIGHT, 300 MG EVERY MORNING, 600 MG, EVERY NIGHT
     Dates: start: 20020101
  2. FRISIUM (CLOBAZAM) [Concomitant]
  3. DEPAKENE [Concomitant]

REACTIONS (2)
  - SPEECH DISORDER [None]
  - HAEMORRHAGE [None]
